FAERS Safety Report 17649288 (Version 1)
Quarter: 2020Q2

REPORT INFORMATION
  Report Type: Report from Study
  Country: DE (occurrence: DE)
  Receive Date: 20200408
  Receipt Date: 20200408
  Transmission Date: 20200713
  Serious: Yes (Hospitalization, Other)
  Sender: FDA-Public Use
  Company Number: DE-BAUSCH-BL-2020-009510

PATIENT
  Age: 38 Year
  Sex: Female

DRUGS (4)
  1. AMLODIPINE [Concomitant]
     Active Substance: AMLODIPINE BESYLATE
     Indication: PRODUCT USED FOR UNKNOWN INDICATION
     Route: 065
  2. L-THYROX [Concomitant]
     Active Substance: LEVOTHYROXINE SODIUM
     Indication: PRODUCT USED FOR UNKNOWN INDICATION
     Route: 065
  3. ACICLOVIR [Suspect]
     Active Substance: ACYCLOVIR
     Indication: HERPES ZOSTER INFECTION NEUROLOGICAL
     Route: 042
  4. GILENYA [Suspect]
     Active Substance: FINGOLIMOD HYDROCHLORIDE
     Indication: MULTIPLE SCLEROSIS
     Route: 048
     Dates: start: 20140611, end: 20181005

REACTIONS (14)
  - Facial paralysis [Unknown]
  - Ear pain [Unknown]
  - Polyneuropathy [Unknown]
  - Vomiting [Unknown]
  - Blood pressure increased [Unknown]
  - Herpes zoster infection neurological [Unknown]
  - Nausea [Unknown]
  - Hypertensive crisis [Unknown]
  - Paraesthesia [Unknown]
  - Eye movement disorder [Unknown]
  - Liver function test increased [Unknown]
  - Otorrhoea [Unknown]
  - Multiple sclerosis relapse [Unknown]
  - Hypoglossal nerve paralysis [Unknown]

NARRATIVE: CASE EVENT DATE: 2015
